FAERS Safety Report 6762831-2 (Version None)
Quarter: 2010Q2

REPORT INFORMATION
  Report Type: 
  Country: None (occurrence: None)
  Receive Date: 20100609
  Receipt Date: 20100607
  Transmission Date: 20101027
  Serious: Yes (Disabling)
  Sender: FDA-Public Use
  Company Number: GB-GILEAD-2010-0028707

PATIENT
  Sex: Female
  Weight: 73 kg

DRUGS (3)
  1. VIREAD [Suspect]
     Indication: HEPATITIS B
     Dates: start: 20080820, end: 20100319
  2. HEPSERA [Suspect]
     Indication: HEPATITIS B
     Route: 048
     Dates: start: 20040304, end: 20080520
  3. LAMIVUDINE [Concomitant]
     Indication: HEPATITIS B
     Route: 048
     Dates: start: 20001018, end: 20080520

REACTIONS (3)
  - BONE PAIN [None]
  - FANCONI SYNDROME ACQUIRED [None]
  - GLOMERULAR FILTRATION RATE DECREASED [None]
